FAERS Safety Report 13247554 (Version 2)
Quarter: 2017Q1

REPORT INFORMATION
  Report Type: Spontaneous
  Country: RU (occurrence: RU)
  Receive Date: 20170217
  Receipt Date: 20170319
  Transmission Date: 20170428
  Serious: Yes (Other)
  Sender: FDA-Public Use
  Company Number: PHHY2017RU021214

PATIENT
  Age: 39 Year
  Sex: Female

DRUGS (8)
  1. MESALAZINE [Concomitant]
     Active Substance: MESALAMINE
     Indication: PRODUCT USED FOR UNKNOWN INDICATION
     Dosage: UNK
     Route: 065
  2. IMATINIB [Suspect]
     Active Substance: IMATINIB
     Dosage: 600 MG, QD
     Route: 065
  3. METHYLPREDNISOLONE. [Concomitant]
     Active Substance: METHYLPREDNISOLONE
     Indication: MYELOPROLIFERATIVE NEOPLASM
     Dosage: 500 MG, QD
     Route: 042
     Dates: end: 20120712
  4. IMATINIB [Suspect]
     Active Substance: IMATINIB
     Dosage: 400 MG, QD
     Route: 065
  5. METHYLPREDNISOLONE. [Concomitant]
     Active Substance: METHYLPREDNISOLONE
     Indication: EOSINOPHILIA
  6. IMATINIB [Suspect]
     Active Substance: IMATINIB
     Indication: MYELOPROLIFERATIVE NEOPLASM
     Dosage: 400 MG, QD
     Route: 065
     Dates: start: 20120531
  7. IMATINIB [Suspect]
     Active Substance: IMATINIB
     Indication: EOSINOPHILIA
     Dosage: 100-200 MG, QD
     Route: 065
  8. IMATINIB [Suspect]
     Active Substance: IMATINIB
     Dosage: UP TO 600 MG, QD
     Route: 065
     Dates: start: 20120713

REACTIONS (4)
  - Eosinophilia [Recovering/Resolving]
  - Mucosal toxicity [Unknown]
  - Therapeutic response decreased [Unknown]
  - Wrong technique in product usage process [Unknown]
